FAERS Safety Report 12661024 (Version 3)
Quarter: 2016Q4

REPORT INFORMATION
  Report Type: Spontaneous
  Country: US (occurrence: US)
  Receive Date: 20160817
  Receipt Date: 20161106
  Transmission Date: 20170207
  Serious: No
  Sender: FDA-Public Use
  Company Number: US-RELYPSA-RLY2016001302

PATIENT
  Sex: Female

DRUGS (9)
  1. SENSIPAR [Concomitant]
     Active Substance: CINACALCET HYDROCHLORIDE
  2. CALCIUM D-500 [Concomitant]
  3. LIDOCAINE PRILOCAINE BIOGARAN [Concomitant]
  4. AMBIEN [Concomitant]
     Active Substance: ZOLPIDEM TARTRATE
     Dosage: UNK, H.S.
  5. IRON [Concomitant]
     Active Substance: IRON
  6. KLONOPIN [Concomitant]
     Active Substance: CLONAZEPAM
  7. VELTASSA [Suspect]
     Active Substance: PATIROMER
     Indication: BLOOD POTASSIUM INCREASED
     Dosage: 8.4 G, THREE TIMES PER WEEK
     Route: 048
     Dates: start: 201606
  8. PHOSPHATE                          /01053101/ [Concomitant]
  9. CALCIUM ACETATE. [Concomitant]
     Active Substance: CALCIUM ACETATE

REACTIONS (9)
  - Discomfort [Unknown]
  - Flatulence [Unknown]
  - Asthenia [Unknown]
  - Epigastric discomfort [Recovering/Resolving]
  - Abdominal distension [Unknown]
  - Fluid retention [Not Recovered/Not Resolved]
  - Limb discomfort [Unknown]
  - Constipation [Not Recovered/Not Resolved]
  - Off label use [Unknown]

NARRATIVE: CASE EVENT DATE: 2016
